FAERS Safety Report 23734204 (Version 5)
Quarter: 2024Q3

REPORT INFORMATION
  Report Type: Report from Study
  Country: US (occurrence: US)
  Receive Date: 20240412
  Receipt Date: 20240723
  Transmission Date: 20241017
  Serious: No
  Sender: ALEXION PHARMACEUTICALS
  Company Number: US-AstraZeneca-CH-00601492A

PATIENT
  Sex: Male

DRUGS (1)
  1. SOLIRIS [Suspect]
     Active Substance: ECULIZUMAB
     Indication: Myasthenia gravis
     Dosage: UNK, UNK, Q2W
     Route: 042
     Dates: start: 20240202

REACTIONS (2)
  - Diplopia [Not Recovered/Not Resolved]
  - Vision blurred [Recovered/Resolved]
